FAERS Safety Report 8192163-X (Version None)
Quarter: 2012Q1

REPORT INFORMATION
  Report Type: 
  Country: None (occurrence: None)
  Receive Date: 20120307
  Receipt Date: 20120305
  Transmission Date: 20120608
  Serious: Yes (Death, Other)
  Sender: FDA-Public Use
  Company Number: AU-PFIZER INC-2012045958

PATIENT
  Age: 27 Year
  Sex: Male

DRUGS (3)
  1. PRISTIQ [Suspect]
     Indication: DEPRESSION
     Dosage: 200 MG, UNK
  2. DIAZEPAM [Interacting]
     Dosage: UNK
  3. MIRTAZAPINE [Interacting]
     Dosage: 30 MG, UNK

REACTIONS (19)
  - PHYSICAL ASSAULT [None]
  - DRUG INTERACTION [None]
  - COMPLETED SUICIDE [None]
  - INSOMNIA [None]
  - HEAD INJURY [None]
  - BRONCHOPNEUMONIA [None]
  - ABNORMAL BEHAVIOUR [None]
  - AGITATION [None]
  - FATIGUE [None]
  - DEPRESSION [None]
  - PAIN IN JAW [None]
  - IMPULSIVE BEHAVIOUR [None]
  - OVERDOSE [None]
  - BIPOLAR DISORDER [None]
  - IMPAIRED DRIVING ABILITY [None]
  - AGGRESSION [None]
  - SWELLING FACE [None]
  - SOCIAL AVOIDANT BEHAVIOUR [None]
  - PERSONALITY CHANGE [None]
